FAERS Safety Report 23170114 (Version 1)
Quarter: 2023Q4

REPORT INFORMATION
  Report Type: Spontaneous
  Country: JP (occurrence: JP)
  Receive Date: 20231110
  Receipt Date: 20231110
  Transmission Date: 20240110
  Serious: Yes (Other)
  Sender: FDA-Public Use
  Company Number: JP-GLAXOSMITHKLINE-JP2023JPN153789

PATIENT

DRUGS (4)
  1. VALTREX [Suspect]
     Active Substance: VALACYCLOVIR HYDROCHLORIDE
     Indication: Antiviral prophylaxis
     Dosage: UNK
  2. DARATUMUMAB (GENETICAL RECOMBINATION) [Concomitant]
     Indication: Plasma cell myeloma
     Dosage: UNK
  3. BORTEZOMIB [Concomitant]
     Active Substance: BORTEZOMIB
     Indication: Plasma cell myeloma
     Dosage: UNK
  4. DEXAMETHASONE [Concomitant]
     Active Substance: DEXAMETHASONE
     Indication: Plasma cell myeloma
     Dosage: UNK

REACTIONS (10)
  - Toxic encephalopathy [Unknown]
  - Altered state of consciousness [Unknown]
  - Metabolic encephalopathy [Unknown]
  - Asterixis [Unknown]
  - Hypoxia [Unknown]
  - Disorientation [Unknown]
  - Pyrexia [Unknown]
  - Hyperammonaemia [Unknown]
  - Restlessness [Unknown]
  - Product use in unapproved indication [Unknown]
